FAERS Safety Report 5014366-5 (Version None)
Quarter: 2006Q2

REPORT INFORMATION
  Report Type: 
  Country: None (occurrence: None)
  Receive Date: 20060525
  Receipt Date: 20060515
  Transmission Date: 20061013
  Serious: Yes (Other)
  Sender: FDA-Public Use
  Company Number: 2006066112

PATIENT
  Age: 42 Year
  Sex: Male
  Weight: 86 kg

DRUGS (4)
  1. AMLODIPINE [Suspect]
     Indication: HYPERTENSION
     Dosage: 5 MG (5 MG, DAILY), ORAL
     Route: 048
     Dates: start: 20030908, end: 20050523
  2. BENDROFLUMETHIAZIDE   (BENDROFLUMETHIAZIDE) [Concomitant]
  3. DIHYDROCODEINE   (DIHYDROCODEINE) [Concomitant]
  4. FLUOXETINE [Concomitant]

REACTIONS (9)
  - ANXIETY [None]
  - BLOOD PRESSURE INCREASED [None]
  - DYSPEPSIA [None]
  - ERECTILE DYSFUNCTION [None]
  - FEELING ABNORMAL [None]
  - HOT FLUSH [None]
  - HYPERHIDROSIS [None]
  - OEDEMA PERIPHERAL [None]
  - SUICIDAL BEHAVIOUR [None]
